FAERS Safety Report 5664389-8 (Version None)
Quarter: 2008Q1

REPORT INFORMATION
  Report Type: 
  Country: None (occurrence: None)
  Receive Date: 20080314
  Receipt Date: 20080229
  Transmission Date: 20080703
  Serious: Yes (Other)
  Sender: FDA-Public Use
  Company Number: TR-AMGEN-US188693

PATIENT
  Sex: Male

DRUGS (4)
  1. ENBREL [Suspect]
     Indication: ANKYLOSING SPONDYLITIS
     Route: 058
     Dates: start: 20050501, end: 20060301
  2. SULFASALAZINE [Concomitant]
     Indication: ANKYLOSING SPONDYLITIS
     Dosage: 2 GRAIN EVERY 1 DAY
     Route: 065
     Dates: start: 20040901, end: 20060501
  3. ISONIAZID [Concomitant]
     Indication: ANTIBIOTIC PROPHYLAXIS
     Route: 065
     Dates: start: 20050501, end: 20060301
  4. METHOTREXATE [Concomitant]
     Indication: ANKYLOSING SPONDYLITIS
     Dosage: ^1MGX6/WEEKLY^
     Route: 065
     Dates: start: 20040901, end: 20060301

REACTIONS (1)
  - THYMOMA MALIGNANT [None]
